FAERS Safety Report 10599101 (Version 1)
Quarter: 2014Q4

REPORT INFORMATION
  Report Type: Spontaneous
  Country: US (occurrence: None)
  Receive Date: 20141119
  Receipt Date: 20141119
  Transmission Date: 20150529
  Serious: No
  Sender: FDA-Public Use
  Company Number: 1000069426

PATIENT
  Age: 75 Year
  Sex: Female

DRUGS (3)
  1. XARELTO [Concomitant]
     Active Substance: RIVAROXABAN
  2. TUDORZA PRESSAIR [Suspect]
     Active Substance: ACLIDINIUM BROMIDE
     Indication: CHRONIC OBSTRUCTIVE PULMONARY DISEASE
     Dosage: 800 MCVG, RESPIRATORY
     Route: 055
     Dates: start: 2014, end: 20140726
  3. APRIN (ACETYLSALICYLIC ACID) [Concomitant]

REACTIONS (2)
  - Heart rate increased [None]
  - Urine output decreased [None]

NARRATIVE: CASE EVENT DATE: 20140725
